FAERS Safety Report 9761223 (Version 1)
Quarter: 2013Q4

REPORT INFORMATION
  Report Type: Spontaneous
  Country: US (occurrence: US)
  Receive Date: 20131216
  Receipt Date: 20131216
  Transmission Date: 20140711
  Serious: Yes (Other)
  Sender: FDA-Public Use
  Company Number: US-PFIZER INC-2013359883

PATIENT
  Age: 66 Year
  Sex: Female
  Weight: 79.37 kg

DRUGS (2)
  1. NEURONTIN [Suspect]
     Indication: BACK PAIN
     Dosage: 300 MG, 2X/DAY
     Dates: start: 2011
  2. NEURONTIN [Suspect]
     Indication: NEURALGIA

REACTIONS (2)
  - Off label use [Unknown]
  - Intervertebral disc protrusion [Unknown]
